FAERS Safety Report 24977664 (Version 3)
Quarter: 2025Q1

REPORT INFORMATION
  Report Type: Spontaneous
  Country: BR (occurrence: BR)
  Receive Date: 20250217
  Receipt Date: 20250310
  Transmission Date: 20250409
  Serious: Yes (Life-Threatening, Hospitalization, Disabling, Other)
  Sender: NOVARTIS
  Company Number: BR-002147023-NVSC2025BR009950

PATIENT
  Age: 1 Year
  Sex: Female
  Weight: 11.25 kg

DRUGS (2)
  1. ZOLGENSMA [Suspect]
     Active Substance: ONASEMNOGENE ABEPARVOVEC-XIOI
     Indication: Spinal muscular atrophy
     Route: 042
     Dates: start: 20250107, end: 20250107
  2. PREDNISOLONE [Concomitant]
     Active Substance: PREDNISOLONE
     Indication: Product used for unknown indication
     Route: 048
     Dates: start: 20250107

REACTIONS (14)
  - Thrombocytopenia [Recovering/Resolving]
  - Thrombotic microangiopathy [Recovered/Resolved with Sequelae]
  - Haemolytic anaemia [Recovering/Resolving]
  - Renal disorder [Recovered/Resolved with Sequelae]
  - Oliguria [Recovering/Resolving]
  - Hypertension [Recovered/Resolved with Sequelae]
  - Proteinuria [Recovering/Resolving]
  - Haematuria [Recovering/Resolving]
  - Red blood cell schistocytes present [Recovering/Resolving]
  - Brain injury [Unknown]
  - Seizure [Unknown]
  - Renal failure [Unknown]
  - Hyponatraemia [Unknown]
  - Somnolence [Unknown]

NARRATIVE: CASE EVENT DATE: 20250116
